FAERS Safety Report 9528421 (Version 2)
Quarter: 2013Q4

REPORT INFORMATION
  Report Type: Spontaneous
  Country: DE (occurrence: DE)
  Receive Date: 20130917
  Receipt Date: 20131122
  Transmission Date: 20140711
  Serious: Yes (Life-Threatening, Hospitalization, Other)
  Sender: FDA-Public Use
  Company Number: DE-TEVA-430557GER

PATIENT
  Age: 72 Year
  Sex: Female
  Weight: 55 kg

DRUGS (16)
  1. AZILECT [Suspect]
     Indication: PARKINSON^S DISEASE
     Dosage: 1 MILLIGRAM DAILY; DAILY DOSE: 1 MG MILLGRAM(S) EVERY DAYS
     Route: 048
  2. FENTANYL [Interacting]
     Indication: ARTHRALGIA
     Route: 042
     Dates: start: 20130729, end: 20130729
  3. RAMIPRIL 1 A PHARMA PLUS 5/12,5 [Concomitant]
     Indication: HYPERTENSION
     Dosage: 1 DOSAGE FORMS DAILY; 5MG RAMIPRIL/12.5 MG HYDROCHLOROTHIAZID
     Route: 048
  4. RAMIPRIL 1 A PHARMA [Concomitant]
     Indication: HYPERTENSION
     Dosage: 5 MILLIGRAM DAILY; DAILY DOSE: 5 MG MILLGRAM(S) EVERY DAY
     Route: 048
  5. ASS (HEXAL) [Concomitant]
     Route: 048
  6. SIMVASTATIN - 1 A PHARMA 40 MG [Concomitant]
     Indication: HYPERCHOLESTEROLAEMIA
     Dosage: .5 DOSAGE FORMS DAILY; DAILY DOSE: 0.5 DF DOSAGE FORM EVERY DAYS
     Route: 048
  7. METFORMIN HEXAL [Concomitant]
     Indication: TYPE 2 DIABETES MELLITUS
     Dosage: 2000 MILLIGRAM DAILY; DAILY DOSE: 2000 MG MILLGRAM(S) EVERY DAY
     Route: 048
  8. PANTOZOL 1 A PHARMA [Concomitant]
     Dosage: 20 MILLIGRAM DAILY; DAILY DOSE: 20 MG MILLGRAM(S) EVERY DAYS
     Route: 048
  9. MELPERON 25 (1 A PHARMA) [Concomitant]
     Indication: SLEEP DISORDER
     Dosage: 25 MILLIGRAM DAILY; DAILY DOSE: 25 MG MILLGRAM(S) EVERY DAYS
     Route: 048
  10. MOVICOL EMRA [Concomitant]
     Indication: CONSTIPATION
     Dosage: 1 DOSAGE FORMS DAILY; DAILY DOSE: 1 DF DOSAGE FORM EVERY DAYS
  11. DOMPERIDON MOTILIUM [Concomitant]
     Dosage: 60 GRAM DAILY; DAILY DOSE: 60 G GRAM(S) EVERY DAYS
  12. STALEVO [Concomitant]
     Indication: PARKINSON^S DISEASE
     Dosage: 50MG LEVODOPA + 12.5MG CARBIDOPA + 200MG ENTACAPON
     Route: 048
  13. XELEVIA [Concomitant]
     Indication: TYPE 2 DIABETES MELLITUS
     Dosage: 100 MILLIGRAM DAILY; DAILY DOSE: 100 MG MILLGRAM(S) EVERY DAYS
     Route: 048
  14. AMANTADIN 100 1 A PHARMA [Concomitant]
     Indication: PARKINSON^S DISEASE
     Dosage: 300 MILLIGRAM DAILY; DAILY DOSE: 300 MG MILLGRAM(S) EVERY DAYS
     Route: 048
     Dates: start: 2013
  15. MADOPAR LT 100/25 [Concomitant]
     Indication: PARKINSON^S DISEASE
     Dosage: 3 DOSAGE FORMS DAILY; DAILY DOSE: 3 DF DOSAGE FORM EVERY DAYS
     Route: 048
  16. SWEATOSAN [Concomitant]
     Dosage: 4 DOSAGE FORMS DAILY; DAILY DOSE: 4 DF DOSAGE FORM EVERY DAYS

REACTIONS (5)
  - Serotonin syndrome [Recovering/Resolving]
  - Drug interaction [Recovering/Resolving]
  - Coordination abnormal [Recovering/Resolving]
  - Pyrexia [Recovering/Resolving]
  - Hypertension [Recovering/Resolving]
